FAERS Safety Report 13597462 (Version 1)
Quarter: 2017Q2

REPORT INFORMATION
  Report Type: Spontaneous
  Country: US (occurrence: US)
  Receive Date: 20170531
  Receipt Date: 20170531
  Transmission Date: 20170830
  Serious: No
  Sender: FDA-Public Use
  Company Number: US-JNJFOC-20170219986

PATIENT
  Age: 76 Year
  Sex: Female
  Weight: 57 kg

DRUGS (9)
  1. SIMVASTATIN. [Concomitant]
     Active Substance: SIMVASTATIN
  2. CENTRUM SILVER [Concomitant]
     Active Substance: MINERALS\VITAMINS
  3. IMBRUVICA [Suspect]
     Active Substance: IBRUTINIB
     Indication: CHRONIC LYMPHOCYTIC LEUKAEMIA
     Route: 048
     Dates: start: 20170124
  4. ALLOPURINOL. [Concomitant]
     Active Substance: ALLOPURINOL
  5. FISH OIL [Concomitant]
     Active Substance: FISH OIL
  6. COQ10 [Concomitant]
     Active Substance: UBIDECARENONE
  7. IMBRUVICA [Suspect]
     Active Substance: IBRUTINIB
     Indication: CHRONIC LYMPHOCYTIC LEUKAEMIA
     Route: 048
     Dates: start: 20170124, end: 20170217
  8. METHOTREXATE. [Concomitant]
     Active Substance: METHOTREXATE
  9. CITRACAL [Concomitant]
     Active Substance: CALCIUM CITRATE

REACTIONS (7)
  - Weight increased [Not Recovered/Not Resolved]
  - Nervousness [Not Recovered/Not Resolved]
  - Decreased activity [Not Recovered/Not Resolved]
  - Hyperphagia [Not Recovered/Not Resolved]
  - Incorrect dose administered [Not Recovered/Not Resolved]
  - Fatigue [Not Recovered/Not Resolved]
  - Off label use [Not Recovered/Not Resolved]

NARRATIVE: CASE EVENT DATE: 2017
